FAERS Safety Report 8892599 (Version 1)
Quarter: 2012Q4

REPORT INFORMATION
  Report Type: Spontaneous
  Country: US (occurrence: None)
  Receive Date: 20121105
  Receipt Date: 20121105
  Transmission Date: 20130627
  Serious: No
  Sender: FDA-Public Use
  Company Number: None

PATIENT
  Sex: Male

DRUGS (1)
  1. OMNIPAQUE [Suspect]
     Indication: CT SCAN
     Dates: start: 20121101, end: 20121101

REACTIONS (4)
  - Urticaria [None]
  - Dyspnoea [None]
  - Throat tightness [None]
  - Vomiting [None]
